FAERS Safety Report 24535548 (Version 3)
Quarter: 2024Q4

REPORT INFORMATION
  Report Type: Spontaneous
  Country: US (occurrence: US)
  Receive Date: 20241022
  Receipt Date: 20241204
  Transmission Date: 20250114
  Serious: Yes (Other)
  Sender: BIOGEN
  Company Number: US-BIOGEN-2024BI01286976

PATIENT
  Age: 3 Year
  Sex: Male

DRUGS (4)
  1. SPINRAZA [Suspect]
     Active Substance: NUSINERSEN
     Indication: Spinal muscular atrophy
     Dosage: 1ST DOSE 18 APR 2024 1ST MAINTENANCE DOSE ON 19 JUN 2024
     Route: 050
     Dates: start: 20240418
  2. ALBUTEROL [Concomitant]
     Active Substance: ALBUTEROL
     Indication: Product used for unknown indication
     Route: 050
  3. IBUPROFEN [Concomitant]
     Active Substance: IBUPROFEN
     Indication: Product used for unknown indication
     Route: 050
  4. TYLENOL [Concomitant]
     Active Substance: ACETAMINOPHEN
     Indication: Product used for unknown indication
     Route: 050

REACTIONS (5)
  - Papilloedema [Recovered/Resolved]
  - Neurological procedural complication [Unknown]
  - Strabismus [Unknown]
  - Amblyopia [Unknown]
  - Ear infection [Unknown]

NARRATIVE: CASE EVENT DATE: 20241014
